FAERS Safety Report 4463389-3 (Version None)
Quarter: 2004Q3

REPORT INFORMATION
  Report Type: 
  Country: None (occurrence: None)
  Receive Date: 20040928
  Receipt Date: 20040909
  Transmission Date: 20050211
  Serious: Yes (Death)
  Sender: FDA-Public Use
  Company Number: A0525226A

PATIENT
  Sex: Female

DRUGS (1)
  1. LOTRONEX [Suspect]
     Dates: start: 20030930, end: 20040824

REACTIONS (1)
  - CEREBROVASCULAR ACCIDENT [None]
